FAERS Safety Report 7927644-4 (Version None)
Quarter: 2011Q4

REPORT INFORMATION
  Report Type: 
  Country: None (occurrence: None)
  Receive Date: 20111118
  Receipt Date: 20111109
  Transmission Date: 20120403
  Serious: Yes (Other)
  Sender: FDA-Public Use
  Company Number: US-BAXTER-2011BH035832

PATIENT
  Age: 42 Year
  Sex: Female

DRUGS (2)
  1. DIANEAL [Suspect]
     Route: 033
  2. DIANEAL [Suspect]
     Indication: PERITONEAL DIALYSIS
     Route: 033

REACTIONS (4)
  - PERITONEAL PERFORATION [None]
  - UNEVALUABLE EVENT [None]
  - PROCEDURAL COMPLICATION [None]
  - IATROGENIC INJURY [None]
